FAERS Safety Report 22600622 (Version 2)
Quarter: 2023Q2

REPORT INFORMATION
  Report Type: Spontaneous
  Country: US (occurrence: US)
  Receive Date: 20230614
  Receipt Date: 20230629
  Transmission Date: 20230721
  Serious: Yes (Other)
  Sender: FDA-Public Use
  Company Number: US-SA-SAC20230613000388

PATIENT
  Age: 56 Year
  Sex: Female

DRUGS (2)
  1. AUBAGIO [Suspect]
     Active Substance: TERIFLUNOMIDE
     Indication: Multiple sclerosis
     Dosage: 14 MG, QD
     Route: 048
     Dates: start: 201706, end: 2023
  2. TERIFLUNOMIDE [Suspect]
     Active Substance: TERIFLUNOMIDE
     Dosage: UNK

REACTIONS (3)
  - Multiple sclerosis relapse [Unknown]
  - Feeling abnormal [Unknown]
  - Disturbance in attention [Unknown]

NARRATIVE: CASE EVENT DATE: 20230501
